FAERS Safety Report 6444684-5 (Version None)
Quarter: 2009Q4

REPORT INFORMATION
  Report Type: 
  Country: None (occurrence: None)
  Receive Date: 20091118
  Receipt Date: 20091110
  Transmission Date: 20100525
  Serious: Yes (Hospitalization)
  Sender: FDA-Public Use
  Company Number: FR-ABBOTT-09P-056-0596951-00

PATIENT
  Sex: Male

DRUGS (13)
  1. HUMIRA [Suspect]
     Indication: PSORIATIC ARTHROPATHY
     Route: 058
     Dates: start: 20080101, end: 20090519
  2. METHOTREXATE [Suspect]
     Indication: DRUG USE FOR UNKNOWN INDICATION
     Route: 048
     Dates: start: 20040101, end: 20090519
  3. PREDNISONE [Suspect]
     Indication: DRUG USE FOR UNKNOWN INDICATION
     Dates: start: 20040101
  4. RAMIPRIL [Suspect]
     Indication: DRUG USE FOR UNKNOWN INDICATION
  5. AMLODIPINE [Concomitant]
     Indication: DRUG USE FOR UNKNOWN INDICATION
  6. FLUINDIONE [Concomitant]
     Indication: DEEP VEIN THROMBOSIS
  7. TAMSULOSIN [Concomitant]
     Indication: DRUG USE FOR UNKNOWN INDICATION
  8. CHOLECALCIFEROL [Concomitant]
     Indication: DRUG USE FOR UNKNOWN INDICATION
  9. PHYTOTHERAPY DRUG [Concomitant]
     Indication: DRUG USE FOR UNKNOWN INDICATION
  10. FOLIC ACID [Concomitant]
     Indication: DRUG USE FOR UNKNOWN INDICATION
  11. POTASSIUM CHLORIDE [Concomitant]
     Indication: DRUG USE FOR UNKNOWN INDICATION
  12. ACETAMINOPHEN WITH PROPOXYPHENE HCL TAB [Concomitant]
     Indication: DRUG USE FOR UNKNOWN INDICATION
  13. RILMENIDINE [Concomitant]
     Indication: DRUG USE FOR UNKNOWN INDICATION

REACTIONS (7)
  - EXTRADURAL ABSCESS [None]
  - INFLAMMATION [None]
  - INTERVERTEBRAL DISCITIS [None]
  - PYREXIA [None]
  - QUADRIPLEGIA [None]
  - STAPHYLOCOCCAL BACTERAEMIA [None]
  - URINARY TRACT INFECTION STAPHYLOCOCCAL [None]
